FAERS Safety Report 25361981 (Version 2)
Quarter: 2025Q2

REPORT INFORMATION
  Report Type: Spontaneous
  Country: US (occurrence: US)
  Receive Date: 20250527
  Receipt Date: 20250609
  Transmission Date: 20250717
  Serious: Yes (Hospitalization, Other)
  Sender: RANBAXY
  Company Number: US-MIMS-SUN-2025-USA-54614

PATIENT
  Sex: Male
  Weight: 89.796 kg

DRUGS (1)
  1. ILUMYA [Suspect]
     Active Substance: TILDRAKIZUMAB-ASMN
     Indication: Psoriasis
     Route: 065

REACTIONS (8)
  - Psoriasis [Unknown]
  - Dry skin [Unknown]
  - Gait disturbance [Unknown]
  - Haemorrhage [Unknown]
  - Pain [Unknown]
  - Product dose omission issue [Unknown]
  - Peripheral swelling [Unknown]
  - Skin fissures [Unknown]
